FAERS Safety Report 5556533-8 (Version None)
Quarter: 2007Q4

REPORT INFORMATION
  Report Type: 
  Country: None (occurrence: None)
  Receive Date: 20071213
  Receipt Date: 20070925
  Transmission Date: 20080405
  Serious: No
  Sender: FDA-Public Use
  Company Number: US-AMGEN-KDL242341

PATIENT
  Sex: Female
  Weight: 61.3 kg

DRUGS (11)
  1. ENBREL [Suspect]
     Indication: RHEUMATOID ARTHRITIS
     Route: 058
     Dates: start: 20070801
  2. FLEXERIL [Concomitant]
  3. FOLIC ACID [Concomitant]
     Route: 048
  4. CALCIUM CARBONATE [Concomitant]
     Route: 048
  5. SALAGEN [Concomitant]
     Route: 048
     Dates: start: 20060101
  6. METHOTREXATE [Concomitant]
     Route: 048
  7. PREDNISONE [Concomitant]
  8. VITAMIN CAP [Concomitant]
     Route: 048
  9. PREMPRO (WYETH-AYERST) [Concomitant]
  10. VICODIN [Concomitant]
  11. ARTHROTEC [Concomitant]

REACTIONS (4)
  - BURNING SENSATION [None]
  - CHEILITIS [None]
  - FEELING HOT [None]
  - MUSCULOSKELETAL STIFFNESS [None]
